FAERS Safety Report 9255830 (Version 3)
Quarter: 2013Q2

REPORT INFORMATION
  Report Type: Report from Study
  Country: AU (occurrence: AU)
  Receive Date: 20130425
  Receipt Date: 20130607
  Transmission Date: 20140414
  Serious: Yes (Hospitalization)
  Sender: FDA-Public Use
  Company Number: AU-AMGEN-AUSCT2013028411

PATIENT
  Age: 71 Year
  Sex: Male

DRUGS (6)
  1. PANITUMUMAB [Suspect]
     Indication: BILE DUCT CANCER
     Dosage: 9 MG/KG, Q3WK
     Route: 042
     Dates: start: 20130405
  2. GEMCITABINE [Concomitant]
     Indication: BILE DUCT CANCER
     Dosage: 1000 MG/M2, UNK
  3. CISPLATIN [Concomitant]
     Indication: BILE DUCT CANCER
     Dosage: 25 MG/M2, UNK
  4. MINAX [Concomitant]
     Dosage: 100 MG, BID
     Route: 048
     Dates: start: 2008
  5. MICARDIS PLUS [Concomitant]
     Dosage: 20 MG, QD
     Route: 048
     Dates: start: 2008
  6. DOXYCYCLINE [Concomitant]
     Dosage: 100 MG, BID
     Route: 048
     Dates: start: 20130405

REACTIONS (1)
  - Diarrhoea [Recovered/Resolved]
